FAERS Safety Report 10071197 (Version 1)
Quarter: 2014Q2

REPORT INFORMATION
  Report Type: Spontaneous
  Country: IT (occurrence: IT)
  Receive Date: 20140410
  Receipt Date: 20140410
  Transmission Date: 20141212
  Serious: Yes (Other)
  Sender: FDA-Public Use
  Company Number: PHHY2014IT041298

PATIENT
  Sex: Female

DRUGS (2)
  1. LEFLUNOMIDE SANDOZ [Suspect]
     Indication: PSORIATIC ARTHROPATHY
     Dosage: 20 MG, QD
     Route: 048
     Dates: start: 20130724, end: 20130810
  2. BASICA [Concomitant]
     Indication: ARTHROPATHY
     Dosage: OFTEN
     Route: 048

REACTIONS (3)
  - Dyspepsia [Recovered/Resolved]
  - Renal colic [Recovered/Resolved]
  - Abdominal pain [Recovered/Resolved]
